FAERS Safety Report 6345129-6 (Version None)
Quarter: 2009Q3

REPORT INFORMATION
  Report Type: 
  Country: None (occurrence: None)
  Receive Date: 20090909
  Receipt Date: 20090828
  Transmission Date: 20100115
  Serious: Yes (Hospitalization)
  Sender: FDA-Public Use
  Company Number: CH-BAYER-200929877GPV

PATIENT
  Age: 43 Year
  Sex: Female

DRUGS (1)
  1. INTERFERON BETA-1B [Suspect]
     Indication: MULTIPLE SCLEROSIS
     Route: 058
     Dates: start: 19970101

REACTIONS (10)
  - ABDOMINAL PAIN LOWER [None]
  - ABDOMINAL TENDERNESS [None]
  - APPENDICECTOMY [None]
  - APPLICATION SITE INDURATION [None]
  - APPLICATION SITE OEDEMA [None]
  - FAECALITH [None]
  - INJECTION SITE INFLAMMATION [None]
  - LEUKOCYTOSIS [None]
  - LYMPHOCYTIC INFILTRATION [None]
  - PYREXIA [None]
